FAERS Safety Report 7714605-3 (Version None)
Quarter: 2011Q3

REPORT INFORMATION
  Report Type: 
  Country: None (occurrence: None)
  Receive Date: 20110829
  Receipt Date: 20110823
  Transmission Date: 20111222
  Serious: Yes (Other)
  Sender: FDA-Public Use
  Company Number: US-PFIZER INC-2011172477

PATIENT
  Sex: Female
  Weight: 126.98 kg

DRUGS (7)
  1. LISINOPRIL [Concomitant]
     Indication: HYPERTENSION
     Dosage: UNK
  2. SIMVASTATIN [Concomitant]
     Indication: BLOOD CHOLESTEROL INCREASED
     Dosage: 40 MG, 1X/DAY
  3. ADVAIR DISKUS 100/50 [Concomitant]
     Dosage: 250/50, EVERY 12 HOURS
  4. ALBUTEROL SULFATE AUTOHALER [Concomitant]
     Dosage: UNK
     Route: 055
  5. LISINOPRIL AND HYDROCHLOROTHIAZIDE [Concomitant]
     Dosage: 40/25MG, DAILY
  6. TOVIAZ [Suspect]
     Indication: HYPERTONIC BLADDER
     Dosage: 4 MG, 1X/DAY
     Route: 048
     Dates: start: 20100930, end: 20110201
  7. PREMARIN [Concomitant]
     Dosage: 0.625 MG, 1X/DAY

REACTIONS (3)
  - FLUID RETENTION [None]
  - DRUG INEFFECTIVE [None]
  - JOINT SWELLING [None]
